FAERS Safety Report 5575995-3 (Version None)
Quarter: 2007Q4

REPORT INFORMATION
  Report Type: 
  Country: None (occurrence: None)
  Receive Date: 20071228
  Receipt Date: 20071221
  Transmission Date: 20080405
  Serious: Yes (Hospitalization)
  Sender: FDA-Public Use
  Company Number: PHEH2007US11647

PATIENT
  Age: 73 Year
  Sex: Male

DRUGS (15)
  1. EXELON [Suspect]
     Indication: COGNITIVE DISORDER
     Dosage: 3 MG, BID
  2. CITRUCEL [Concomitant]
     Indication: DIARRHOEA
     Dosage: TWO CAPS TWICE DAILY
  3. DEPAKOTE [Concomitant]
     Indication: AFFECTIVE DISORDER
     Dosage: 500 MG, QHS
  4. PRAVASTATIN [Concomitant]
     Indication: BLOOD CHOLESTEROL
     Dosage: 40 MG, QHS
  5. TRAZODONE HCL [Concomitant]
     Dosage: 100 MG, PRN
  6. TYLENOL [Concomitant]
     Indication: HEADACHE
     Dosage: 500 MG, PRN
  7. PROVIGIL [Concomitant]
     Indication: IMPAIRED DRIVING ABILITY
     Dosage: 200 MG, QD
  8. LASIX [Concomitant]
     Indication: BLOOD PRESSURE
     Dosage: 20 MG, QD
  9. LEXAPRO [Concomitant]
     Indication: DEPRESSION
     Dosage: 10 MG, QD
  10. LOPRESSOR [Concomitant]
     Indication: BLOOD PRESSURE
     Dosage: 25 MG, BID
  11. IMODIUM ADVANCED [Concomitant]
     Indication: DIARRHOEA
     Dosage: UNK, BID
  12. GAS X [Concomitant]
     Indication: FLATULENCE
     Dosage: UNK, BID
  13. FLOMAX [Concomitant]
     Indication: BLADDER DISORDER
     Dosage: 0.4 MG, QD
  14. CENTRUM SILVER [Concomitant]
     Dosage: 1 TAB EVERY TWO DAYS
  15. ASPIRIN [Concomitant]
     Indication: ANTICOAGULANT THERAPY
     Dosage: 325 MG, QD

REACTIONS (1)
  - CARDIAC OPERATION [None]
